FAERS Safety Report 10432314 (Version 5)
Quarter: 2014Q4

REPORT INFORMATION
  Report Type: Spontaneous
  Country: US (occurrence: US)
  Receive Date: 20140905
  Receipt Date: 20141013
  Transmission Date: 20150528
  Serious: Yes (Hospitalization)
  Sender: FDA-Public Use
  Company Number: US-UNITED THERAPEUTICS-UNT-2014-006309

PATIENT
  Age: 24 Year
  Sex: Female
  Weight: 141.95 kg

DRUGS (2)
  1. LETAIRIS [Concomitant]
     Active Substance: AMBRISENTAN
     Indication: PRODUCT USED FOR UNKNOWN INDICATION
  2. REMODULIN [Suspect]
     Active Substance: TREPROSTINIL
     Indication: COR PULMONALE CHRONIC
     Dosage: 0.056 ?G/KG, CONTINUING
     Route: 058
     Dates: start: 20140522

REACTIONS (12)
  - Sleep apnoea syndrome [Unknown]
  - Abdominal pain [Recovered/Resolved]
  - Systemic lupus erythematosus [Unknown]
  - Pancytopenia [Unknown]
  - Pulmonary hypertension [Unknown]
  - Nausea [Recovered/Resolved]
  - Dehydration [Unknown]
  - Gastritis [Unknown]
  - Diarrhoea [Recovered/Resolved]
  - Vomiting [Recovered/Resolved]
  - Infection [Unknown]
  - Tachycardia [Recovered/Resolved]

NARRATIVE: CASE EVENT DATE: 20140817
